FAERS Safety Report 10053039 (Version 2)
Quarter: 2014Q2

REPORT INFORMATION
  Report Type: Spontaneous
  Country: IT (occurrence: IT)
  Receive Date: 20140402
  Receipt Date: 20140626
  Transmission Date: 20141212
  Serious: Yes (Hospitalization)
  Sender: FDA-Public Use
  Company Number: IT-PFIZER INC-2014092322

PATIENT
  Age: 63 Year
  Sex: Female

DRUGS (4)
  1. NORVASC [Suspect]
     Indication: HYPERTENSION
     Dosage: 10 MG, TOTAL DOSAGE
     Route: 048
     Dates: start: 20140311, end: 20140311
  2. LASIX [Suspect]
     Indication: HYPERTENSION
     Dosage: 20 MG/KG, TOTAL DOSAGE
     Route: 030
     Dates: start: 20140311, end: 20140311
  3. RAMIPRIL [Concomitant]
     Dosage: 2.5 MG, UNK
  4. MODURETIC [Concomitant]

REACTIONS (2)
  - Hypotension [Recovering/Resolving]
  - Loss of consciousness [Recovering/Resolving]
